FAERS Safety Report 6841669-1 (Version None)
Quarter: 2010Q3

REPORT INFORMATION
  Report Type: 
  Country: None (occurrence: None)
  Receive Date: 20100709
  Receipt Date: 20100623
  Transmission Date: 20110219
  Serious: Yes (Death)
  Sender: FDA-Public Use
  Company Number: THQ2010A01801

PATIENT
  Age: 65 Year
  Sex: Male

DRUGS (1)
  1. ACTOPLUS MET [Suspect]
     Dosage: PER ORAL
     Route: 048
     Dates: start: 20100515

REACTIONS (1)
  - HEPATIC NEOPLASM MALIGNANT [None]
